FAERS Safety Report 6248040-4 (Version None)
Quarter: 2009Q2

REPORT INFORMATION
  Report Type: 
  Country: None (occurrence: None)
  Receive Date: 20090626
  Receipt Date: 20090414
  Transmission Date: 20091009
  Serious: Yes (Other)
  Sender: FDA-Public Use
  Company Number: RU-GENENTECH-281808

PATIENT

DRUGS (1)
  1. PULMOZYME [Suspect]
     Indication: CYSTIC FIBROSIS
     Dosage: 2.5 MG, UNK
     Route: 055

REACTIONS (1)
  - BRONCHIAL OBSTRUCTION [None]
